FAERS Safety Report 8219537-2 (Version None)
Quarter: 2012Q1

REPORT INFORMATION
  Report Type: 
  Country: None (occurrence: None)
  Receive Date: 20120319
  Receipt Date: 20120309
  Transmission Date: 20120608
  Serious: Yes (Other)
  Sender: FDA-Public Use
  Company Number: US-JNJFOC-20120305460

PATIENT
  Sex: Female

DRUGS (2)
  1. STELARA [Suspect]
     Indication: ARTHRITIS
     Route: 058
     Dates: start: 20110902
  2. STELARA [Suspect]
     Route: 058
     Dates: start: 20111223

REACTIONS (3)
  - ARTHRITIS [None]
  - OFF LABEL USE [None]
  - DRUG INEFFECTIVE FOR UNAPPROVED INDICATION [None]
